FAERS Safety Report 7979908 (Version 3)
Quarter: 2014Q3

REPORT INFORMATION
  Report Type: Spontaneous
  Country: US (occurrence: US)
  Receive Date: 20110608
  Receipt Date: 20140805
  Transmission Date: 20150326
  Serious: Yes (Life-Threatening, Hospitalization)
  Sender: FDA-Public Use
  Company Number: US-BAYER-2011-048901

PATIENT
  Age: 28 Year
  Sex: Female
  Weight: 113.38 kg

DRUGS (7)
  1. PREVACID [Concomitant]
     Active Substance: LANSOPRAZOLE
     Indication: GASTROOESOPHAGEAL REFLUX DISEASE
     Dosage: UNK
     Dates: start: 2000
  2. TUSSIONEX PENNKINETIC [Concomitant]
     Active Substance: CHLORPHENIRAMINE\HYDROCODONE
     Indication: BRONCHITIS
     Dosage: 1 TEASPOON, BID
     Route: 048
  3. AVELOX [Concomitant]
     Active Substance: MOXIFLOXACIN HYDROCHLORIDE
     Indication: BRONCHITIS
     Dosage: 400 MG, DAILY
  4. IBUPROFEN. [Concomitant]
     Active Substance: IBUPROFEN
     Indication: INFLAMMATION
     Dosage: UNK
     Dates: start: 200612
  5. ALEVE [Concomitant]
     Active Substance: NAPROXEN SODIUM
     Indication: SINUS HEADACHE
     Dosage: UNK
     Dates: start: 200612
  6. YASMIN [Suspect]
     Active Substance: DROSPIRENONE\ETHINYL ESTRADIOL
     Indication: CONTRACEPTION
     Dosage: UNK
     Dates: start: 2005, end: 200701
  7. AZITHROMYCIN [Suspect]
     Active Substance: AZITHROMYCIN ANHYDROUS
     Dosage: 250 MG, UNK

REACTIONS (9)
  - Injury [None]
  - Anxiety [None]
  - Heart injury [None]
  - Pain [None]
  - Activities of daily living impaired [None]
  - General physical health deterioration [None]
  - Myocardial infarction [None]
  - Emotional distress [None]
  - Anhedonia [None]

NARRATIVE: CASE EVENT DATE: 20070104
